FAERS Safety Report 12565618 (Version 1)
Quarter: 2016Q3

REPORT INFORMATION
  Report Type: Spontaneous
  Country: US (occurrence: US)
  Receive Date: 20160718
  Receipt Date: 20160718
  Transmission Date: 20161109
  Serious: No
  Sender: FDA-Public Use
  Company Number: US-BAUSCH-BL-2015-017673

PATIENT
  Age: 84 Year
  Sex: Male
  Weight: 57.66 kg

DRUGS (2)
  1. BESIVANCE [Suspect]
     Active Substance: BESIFLOXACIN
     Indication: EYE INFECTION
     Route: 047
     Dates: start: 20150714
  2. BESIVANCE [Suspect]
     Active Substance: BESIFLOXACIN
     Indication: CONJUNCTIVITIS BACTERIAL
     Route: 047
     Dates: start: 20160307

REACTIONS (7)
  - Vision blurred [Not Recovered/Not Resolved]
  - Drug ineffective [Unknown]
  - Eye pruritus [Not Recovered/Not Resolved]
  - Eyelid margin crusting [Not Recovered/Not Resolved]
  - Lacrimation increased [Not Recovered/Not Resolved]
  - Ocular hyperaemia [Recovering/Resolving]
  - Eye pain [Not Recovered/Not Resolved]

NARRATIVE: CASE EVENT DATE: 201507
